FAERS Safety Report 5603683-3 (Version None)
Quarter: 2008Q1

REPORT INFORMATION
  Report Type: 
  Country: None (occurrence: None)
  Receive Date: 20080123
  Receipt Date: 20080112
  Transmission Date: 20080703
  Serious: Yes (Other)
  Sender: FDA-Public Use
  Company Number: 2008AP000180

PATIENT
  Age: 68 Year
  Sex: Male

DRUGS (6)
  1. CYCLOSPORINE [Suspect]
     Indication: IMMUNOSUPPRESSANT DRUG THERAPY
  2. PRAZIQUANTEL [Concomitant]
  3. ACYCLOVIR [Concomitant]
  4. MYCOPHENOLATE MOFETIL [Concomitant]
  5. PREDNISONE TAB [Concomitant]
  6. TACROLIMUS [Concomitant]

REACTIONS (6)
  - DIARRHOEA HAEMORRHAGIC [None]
  - HEPATIC ENZYME INCREASED [None]
  - INFECTION [None]
  - LIVER TRANSPLANT [None]
  - SCHISTOSOMIASIS [None]
  - THROMBOCYTOPENIA [None]
